APPROVED DRUG PRODUCT: TRANEXAMIC ACID
Active Ingredient: TRANEXAMIC ACID
Strength: 650MG
Dosage Form/Route: TABLET;ORAL
Application: A202286 | Product #001
Applicant: APOTEX INC
Approved: Jan 27, 2014 | RLD: No | RS: No | Type: DISCN